FAERS Safety Report 7589601-X (Version None)
Quarter: 2011Q3

REPORT INFORMATION
  Report Type: 
  Country: None (occurrence: None)
  Receive Date: 20110705
  Receipt Date: 20110628
  Transmission Date: 20111222
  Serious: Yes (Hospitalization, Other)
  Sender: FDA-Public Use
  Company Number: CA-ROCHE-786473

PATIENT
  Sex: Male

DRUGS (1)
  1. CAPECITABINE [Suspect]
     Route: 048
     Dates: start: 20110603, end: 20110617

REACTIONS (4)
  - SWELLING [None]
  - GASTROINTESTINAL OEDEMA [None]
  - DECREASED APPETITE [None]
  - VOMITING [None]
